FAERS Safety Report 18256992 (Version 6)
Quarter: 2022Q2

REPORT INFORMATION
  Report Type: Spontaneous
  Country: None (occurrence: CN)
  Receive Date: 20200911
  Receipt Date: 20220412
  Transmission Date: 20220721
  Serious: Yes (Death, Hospitalization, Other)
  Sender: FDA-Public Use
  Company Number: CN-JIANGSU HENGRUI MEDICINE CO., LTD.-2089656

PATIENT
  Age: 75 Year
  Sex: Male
  Weight: 61 kg

DRUGS (3)
  1. DOCETAXEL [Suspect]
     Active Substance: DOCETAXEL
     Indication: Lung squamous cell carcinoma stage IV
     Route: 041
     Dates: start: 20200701, end: 20200820
  2. CAMRELIZUMAB [Suspect]
     Active Substance: CAMRELIZUMAB
     Route: 041
     Dates: start: 20200729, end: 20200820
  3. CISPLATIN [Suspect]
     Active Substance: CISPLATIN
     Route: 041
     Dates: start: 20200701, end: 20200703

REACTIONS (17)
  - IIIrd nerve injury [Not Recovered/Not Resolved]
  - Myasthenia gravis [Unknown]
  - Death [Fatal]
  - Cardiac failure acute [Unknown]
  - Immune-mediated myocarditis [Unknown]
  - Pneumonia [Unknown]
  - Reactive capillary endothelial proliferation [Unknown]
  - Product use in unapproved indication [Unknown]
  - Duodenal ulcer [Unknown]
  - Arteriosclerosis coronary artery [Unknown]
  - Myositis [Unknown]
  - Hypertension [Unknown]
  - Hypercoagulation [Unknown]
  - Aspartate aminotransferase increased [Unknown]
  - Alanine aminotransferase increased [Unknown]
  - Blood lactate dehydrogenase increased [Unknown]
  - Glycated albumin increased [Unknown]

NARRATIVE: CASE EVENT DATE: 20200729
